FAERS Safety Report 25048121 (Version 1)
Quarter: 2025Q1

REPORT INFORMATION
  Report Type: Spontaneous
  Country: IL (occurrence: IL)
  Receive Date: 20250306
  Receipt Date: 20250306
  Transmission Date: 20250409
  Serious: Yes (Other)
  Sender: AMGEN
  Company Number: IL-AMGEN-ISRSP2025039055

PATIENT
  Age: 12 Year
  Sex: Female

DRUGS (6)
  1. BEVACIZUMAB [Suspect]
     Active Substance: BEVACIZUMAB
     Indication: Retinopathy proliferative
  2. BEVACIZUMAB [Suspect]
     Active Substance: BEVACIZUMAB
  3. COLCHICINE [Concomitant]
     Active Substance: COLCHICINE
     Dosage: 0.5 MILLIGRAM, QD
     Route: 048
  4. METHYLPREDNISOLONE [Concomitant]
     Active Substance: METHYLPREDNISOLONE
     Route: 040
  5. PREDNISONE [Concomitant]
     Active Substance: PREDNISONE
     Route: 048
  6. AZATHIOPRINE [Concomitant]
     Active Substance: AZATHIOPRINE
     Dosage: 150 MILLIGRAM, QD
     Route: 065

REACTIONS (8)
  - Cataract subcapsular [Unknown]
  - Demyelination [Unknown]
  - Leukodystrophy [Unknown]
  - Retinal degeneration [Unknown]
  - Retinopathy proliferative [Unknown]
  - Drug effective for unapproved indication [Unknown]
  - Therapy partial responder [Unknown]
  - Off label use [Unknown]
